FAERS Safety Report 19660860 (Version 2)
Quarter: 2022Q2

REPORT INFORMATION
  Report Type: Spontaneous
  Country: US (occurrence: US)
  Receive Date: 20210805
  Receipt Date: 20220411
  Transmission Date: 20220720
  Serious: No
  Sender: FDA-Public Use
  Company Number: US-PFIZER INC-202100945939

PATIENT
  Age: 69 Year
  Sex: Female

DRUGS (2)
  1. EUCRISA [Suspect]
     Active Substance: CRISABOROLE
     Indication: Eczema
     Dosage: 2X/DAY (BID FOR 14 DAYS)
  2. EUCRISA [Suspect]
     Active Substance: CRISABOROLE
     Indication: Blepharitis

REACTIONS (4)
  - Drug ineffective [Not Recovered/Not Resolved]
  - Expired product administered [Not Recovered/Not Resolved]
  - Erythema [Unknown]
  - Ocular hyperaemia [Unknown]
